FAERS Safety Report 8490730-7 (Version None)
Quarter: 2012Q3

REPORT INFORMATION
  Report Type: 
  Country: None (occurrence: None)
  Receive Date: 20120706
  Receipt Date: 20120625
  Transmission Date: 20120928
  Serious: Yes (Other)
  Sender: FDA-Public Use
  Company Number: AR-AMGEN-ARGSP2012035739

PATIENT
  Age: 49 Year
  Sex: Female

DRUGS (4)
  1. PREDNISONE [Concomitant]
     Dosage: UNK
     Route: 048
     Dates: start: 20000101
  2. METHOTREXATE [Concomitant]
     Dosage: UNK
     Route: 048
     Dates: start: 20000101
  3. ENBREL [Suspect]
     Indication: RHEUMATOID ARTHRITIS
     Dosage: UNK
     Dates: start: 20120601, end: 20120601
  4. ENBREL [Suspect]
     Dosage: 50 MG, WEEKLY
     Route: 058
     Dates: start: 20101115, end: 20111001

REACTIONS (2)
  - RHEUMATOID ARTHRITIS [None]
  - OEDEMA PERIPHERAL [None]
